FAERS Safety Report 19197073 (Version 1)
Quarter: 2021Q2

REPORT INFORMATION
  Report Type: Spontaneous
  Country: US (occurrence: US)
  Receive Date: 20210430
  Receipt Date: 20210430
  Transmission Date: 20210717
  Serious: Yes (Death, Other)
  Sender: FDA-Public Use
  Company Number: US-INSUD PHARMA-2104US00479

PATIENT

DRUGS (2)
  1. CEFAZOLIN [Suspect]
     Active Substance: CEFAZOLIN
     Indication: ANTIBIOTIC PROPHYLAXIS
     Dosage: 1 MONTH PRIOR
     Route: 065
  2. NUVESSA [Suspect]
     Active Substance: METRONIDAZOLE
     Indication: ANTIBIOTIC PROPHYLAXIS
     Dosage: 1 MONTH PRIOR
     Route: 065

REACTIONS (6)
  - Megacolon [Unknown]
  - Mucous stools [Unknown]
  - Multimorbidity [Fatal]
  - Abdominal pain [Unknown]
  - Abdominal distension [Unknown]
  - Clostridium difficile infection [Unknown]
